FAERS Safety Report 6305259-1 (Version None)
Quarter: 2009Q3

REPORT INFORMATION
  Report Type: 
  Country: None (occurrence: None)
  Receive Date: 20090811
  Receipt Date: 20090805
  Transmission Date: 20100115
  Serious: Yes (Life-Threatening)
  Sender: FDA-Public Use
  Company Number: PHEH2009US08490

PATIENT
  Age: 31 Year
  Sex: Male

DRUGS (3)
  1. GLEEVEC [Suspect]
     Indication: CHRONIC MYELOID LEUKAEMIA
     Dosage: 400 MG, QD
     Route: 048
     Dates: start: 20080901, end: 20090701
  2. GLEEVEC [Suspect]
     Dosage: 400 MG, QD
     Route: 048
  3. LASIX [Concomitant]
     Dosage: UNK

REACTIONS (2)
  - IDIOPATHIC THROMBOCYTOPENIC PURPURA [None]
  - THROMBOCYTOPENIA [None]
